FAERS Safety Report 23793875 (Version 2)
Quarter: 2024Q2

REPORT INFORMATION
  Report Type: Spontaneous
  Country: TH (occurrence: None)
  Receive Date: 20240429
  Receipt Date: 20240515
  Transmission Date: 20240715
  Serious: Yes (Other)
  Sender: FDA-Public Use
  Company Number: TH-ROCHE-3548828

PATIENT
  Age: 59 Year
  Sex: Male

DRUGS (4)
  1. BEVACIZUMAB [Suspect]
     Active Substance: BEVACIZUMAB
     Indication: Non-small cell lung cancer metastatic
     Route: 065
     Dates: start: 20211015
  2. ATEZOLIZUMAB [Suspect]
     Active Substance: ATEZOLIZUMAB
     Indication: Non-small cell lung cancer metastatic
     Route: 065
     Dates: start: 20211015
  3. CARBOPLATIN [Suspect]
     Active Substance: CARBOPLATIN
     Indication: Non-small cell lung cancer metastatic
     Route: 065
     Dates: start: 20211015
  4. PACLITAXEL [Suspect]
     Active Substance: PACLITAXEL
     Indication: Non-small cell lung cancer metastatic
     Route: 065
     Dates: start: 20211015

REACTIONS (10)
  - Pancreatitis [Unknown]
  - Pneumonitis [Unknown]
  - Colitis [Unknown]
  - Hepatitis [Unknown]
  - Hypothyroidism [Unknown]
  - Hyperthyroidism [Unknown]
  - Rash [Unknown]
  - Adrenal insufficiency [Unknown]
  - Infusion related reaction [Unknown]
  - Skin reaction [Unknown]
